FAERS Safety Report 18241970 (Version 1)
Quarter: 2020Q3

REPORT INFORMATION
  Report Type: Spontaneous
  Country: US (occurrence: US)
  Receive Date: 20200908
  Receipt Date: 20200908
  Transmission Date: 20201103
  Serious: No
  Sender: FDA-Public Use
  Company Number: None

PATIENT
  Age: 84 Year
  Sex: Female
  Weight: 50.85 kg

DRUGS (9)
  1. AFINITOR [Suspect]
     Active Substance: EVEROLIMUS
     Indication: LUNG NEOPLASM MALIGNANT
     Route: 048
     Dates: start: 20200818, end: 20200908
  2. ATENOLOL. [Concomitant]
     Active Substance: ATENOLOL
  3. ALKA?SELTZER [Concomitant]
     Active Substance: ANHYDROUS CITRIC ACID\ASPIRIN\SODIUM BICARBONATE
  4. ARIMIDEX [Concomitant]
     Active Substance: ANASTROZOLE
  5. AFINITOR [Suspect]
     Active Substance: EVEROLIMUS
     Indication: BREAST CANCER
     Route: 048
     Dates: start: 20200818, end: 20200908
  6. BAYER BACK AND BODY EXTRA STRENGTH [Concomitant]
     Active Substance: ASPIRIN\CAFFEINE
  7. MAGIC MOUTHWASH [Concomitant]
     Active Substance: DIPHENHYDRAMINE HYDROCHLORIDE\LIDOCAINE HYDROCHLORIDE\NYSTATIN
  8. MUCINEX DM [Concomitant]
     Active Substance: DEXTROMETHORPHAN HYDROBROMIDE\GUAIFENESIN
  9. ANASTRAZOLE [Concomitant]
     Active Substance: ANASTROZOLE

REACTIONS (4)
  - Weight decreased [None]
  - Disease progression [None]
  - Unevaluable event [None]
  - Oedema [None]

NARRATIVE: CASE EVENT DATE: 20200908
